FAERS Safety Report 7527351-6 (Version None)
Quarter: 2011Q2

REPORT INFORMATION
  Report Type: 
  Country: None (occurrence: None)
  Receive Date: 20110607
  Receipt Date: 20110124
  Transmission Date: 20111010
  Serious: Yes (Hospitalization, Other)
  Sender: FDA-Public Use
  Company Number: US-BAYER-201039082NA

PATIENT
  Age: 28 Year
  Sex: Female
  Weight: 104.31 kg

DRUGS (10)
  1. IBUPROFEN [Concomitant]
  2. RESTASIS [Concomitant]
  3. IMITREX [Concomitant]
  4. YASMIN [Suspect]
     Indication: ACNE
     Dosage: UNK
     Dates: start: 20050101, end: 20090101
  5. PREDNISONE [Concomitant]
  6. PROTONIX [Concomitant]
  7. SYNTHROID [Concomitant]
  8. DROSPIRENONE AND ETHINYL ESTRADIOL [Suspect]
     Indication: ACNE
     Dosage: UNK
     Dates: start: 20050101, end: 20090101
  9. ALBUTEROL SULFATE AUTOHALER [Concomitant]
  10. TYLENOL W/ CODEINE [Concomitant]

REACTIONS (2)
  - CHOLECYSTITIS [None]
  - GALLBLADDER DISORDER [None]
